FAERS Safety Report 9303896 (Version 1)
Quarter: 2013Q2

REPORT INFORMATION
  Report Type: Other
  Country: US (occurrence: US)
  Receive Date: 20130522
  Receipt Date: 20130522
  Transmission Date: 20140414
  Serious: Yes (Other)
  Sender: FDA-Public Use
  Company Number: US-FOUGERA-2013FO000139

PATIENT
  Age: 91 Year
  Sex: Female

DRUGS (1)
  1. IMIQUIMOD [Suspect]
     Indication: BASAL CELL CARCINOMA
     Route: 061

REACTIONS (9)
  - Delirium [Recovered/Resolved]
  - Cognitive disorder [Recovering/Resolving]
  - Dementia [None]
  - Disturbance in attention [Unknown]
  - Off label use [Recovered/Resolved]
  - Inappropriate schedule of drug administration [Recovered/Resolved]
  - Inflammation [Unknown]
  - Insomnia [Unknown]
  - Agitation [Unknown]
